FAERS Safety Report 17481675 (Version 1)
Quarter: 2020Q1

REPORT INFORMATION
  Report Type: Spontaneous
  Country: US (occurrence: US)
  Receive Date: 20200302
  Receipt Date: 20200302
  Transmission Date: 20200409
  Serious: No
  Sender: FDA-Public Use
  Company Number: US-GLENMARK PHARMACEUTICALS-2019GMK045223

PATIENT

DRUGS (1)
  1. CLOTRIMAZOLE AND BETAMETHASONE DIPROPIONATE CREAM USP, 1%/0.05% (BASE) [Suspect]
     Active Substance: BETAMETHASONE DIPROPIONATE\CLOTRIMAZOLE
     Indication: CHOLESTEATOMA
     Dosage: UNK (INSIDE THE EAR)
     Route: 001

REACTIONS (3)
  - Intercepted product prescribing error [Unknown]
  - Product use in unapproved indication [Unknown]
  - Product prescribing error [Unknown]
